FAERS Safety Report 5028379-0 (Version None)
Quarter: 2006Q2

REPORT INFORMATION
  Report Type: 
  Country: None (occurrence: None)
  Receive Date: 20060503
  Receipt Date: 20060301
  Transmission Date: 20061013
  Serious: No
  Sender: FDA-Public Use
  Company Number: FACT0600127

PATIENT
  Age: 57 Year
  Sex: Male
  Weight: 84.4 kg

DRUGS (7)
  1. FACTIVE [Suspect]
     Indication: RESPIRATORY TRACT INFECTION BACTERIAL
     Dosage: ORAL
     Route: 048
     Dates: start: 20051227, end: 20051231
  2. SOLU-MEDROL [Suspect]
     Dosage: 125 MG, SINGLE, INTRAMUSCULAR
     Route: 030
     Dates: start: 20051227, end: 20051227
  3. FLOMAX [Concomitant]
  4. CRESTOR [Concomitant]
  5. SPIRIVA [Concomitant]
  6. RHINOCORT [Concomitant]
  7. TESTOSTERONE [Concomitant]

REACTIONS (2)
  - ORAL CANDIDIASIS [None]
  - RASH GENERALISED [None]
